FAERS Safety Report 7383438-2 (Version None)
Quarter: 2011Q1

REPORT INFORMATION
  Report Type: 
  Country: None (occurrence: None)
  Receive Date: 20110324
  Receipt Date: 20110324
  Transmission Date: 20110831
  Serious: Yes (Other)
  Sender: FDA-Public Use
  Company Number: None

PATIENT
  Age: 29 Year
  Sex: Male
  Weight: 76.2 kg

DRUGS (28)
  1. BISACODYL [Concomitant]
  2. DOCUSATE [Concomitant]
  3. MORPHINE [Concomitant]
  4. ENOXAPARIN [Suspect]
     Indication: DEEP VEIN THROMBOSIS
     Dosage: 50MG TWICE DAILY SQ
     Route: 058
     Dates: start: 20110204, end: 20110311
  5. ACETYLCYSTEINE [Concomitant]
  6. OXYCODONE HCL EXTENDED-RELEASE [Concomitant]
  7. FLUTICASONE PROPIONATE [Concomitant]
  8. LIDOCAINE [Concomitant]
  9. SALINE [Concomitant]
  10. POLYCARBOPHIL [Concomitant]
  11. ZOLPIDEM CR [Concomitant]
  12. ALBUTEROL [Concomitant]
  13. ETIDRONATE DISODIUM [Concomitant]
  14. OMEPRAZOLE [Concomitant]
  15. LOAZEPAM [Concomitant]
  16. HYPROMELLOSE [Concomitant]
  17. BACLOFEN [Concomitant]
  18. FONDAPARINUX [Concomitant]
  19. LORATADINE [Concomitant]
  20. ONDANSETRON [Concomitant]
  21. MENTHOL/METHYL SALICYLATE [Concomitant]
  22. MIDODRINE HYDROCHLORIDE [Concomitant]
  23. NAPROXEN [Concomitant]
  24. LEVOFLOXACIN [Concomitant]
  25. OXYBUTYNIN [Concomitant]
  26. SENNA [Concomitant]
  27. UREA [Concomitant]
  28. ACETAMINOPHEN [Concomitant]

REACTIONS (1)
  - PLATELET COUNT DECREASED [None]
